FAERS Safety Report 5929839-8 (Version None)
Quarter: 2008Q3

REPORT INFORMATION
  Report Type: 
  Country: None (occurrence: None)
  Receive Date: 20080930
  Receipt Date: 20060828
  Transmission Date: 20090109
  Serious: Yes (Hospitalization)
  Sender: FDA-Public Use
  Company Number: 147004USA

PATIENT
  Age: 37 Year
  Sex: Male

DRUGS (1)
  1. FLUDARABINE PHOSPHATE [Suspect]
     Dosage: DAILY
     Dates: start: 20060701, end: 20060728

REACTIONS (1)
  - BLINDNESS [None]
